FAERS Safety Report 17291377 (Version 1)
Quarter: 2020Q1

REPORT INFORMATION
  Report Type: Spontaneous
  Country: US (occurrence: US)
  Receive Date: 20200117
  Receipt Date: 20200117
  Transmission Date: 20200409
  Serious: Yes (Other)
  Sender: FDA-Public Use
  Company Number: None

PATIENT
  Age: 64 Year
  Sex: Female
  Weight: 104.4 kg

DRUGS (11)
  1. ALVESCO [Concomitant]
     Active Substance: CICLESONIDE
  2. OMEPRAZOLE. [Concomitant]
     Active Substance: OMEPRAZOLE
  3. METFORMIN HCL XR 500 MG [Suspect]
     Active Substance: METFORMIN HYDROCHLORIDE
     Indication: WEIGHT DECREASED
     Dosage: ?          QUANTITY:180 TABLET(S);?
     Route: 048
  4. MONTELUKAST SOD [Concomitant]
     Active Substance: MONTELUKAST SODIUM
  5. IPRATROPIUM [Concomitant]
     Active Substance: IPRATROPIUM
  6. LISINOPRIL. [Concomitant]
     Active Substance: LISINOPRIL
  7. ALEVE [Concomitant]
     Active Substance: NAPROXEN SODIUM
  8. METFORMIN HCL XR 750 MG [Suspect]
     Active Substance: METFORMIN HYDROCHLORIDE
  9. KIRKLAND SIGNATURE ALLER FEX [Concomitant]
     Active Substance: FEXOFENADINE HYDROCHLORIDE
  10. LEVETIRACETAM. [Concomitant]
     Active Substance: LEVETIRACETAM
  11. VITAMIN D3 [Concomitant]
     Active Substance: CHOLECALCIFEROL

REACTIONS (2)
  - Abdominal pain [None]
  - Pancreatic disorder [None]

NARRATIVE: CASE EVENT DATE: 20191003
